FAERS Safety Report 11429497 (Version 1)
Quarter: 2015Q3

REPORT INFORMATION
  Report Type: Spontaneous
  Country: DE (occurrence: DE)
  Receive Date: 20150828
  Receipt Date: 20150828
  Transmission Date: 20151125
  Serious: Yes (Other)
  Sender: FDA-Public Use
  Company Number: DE-UCBSA-2015005579

PATIENT
  Age: 42 Year
  Sex: Female

DRUGS (3)
  1. LEVETIRACETAM UCB [Suspect]
     Active Substance: LEVETIRACETAM
     Indication: EPILEPSY
     Dosage: 2000 MG, 2X/DAY (BID)
     Route: 048
     Dates: start: 201409, end: 201412
  2. LAMOTRIGINE. [Concomitant]
     Active Substance: LAMOTRIGINE
     Indication: EPILEPSY
     Dosage: 150 MG, 2X/DAY (BID)
  3. KEPPRA [Suspect]
     Active Substance: LEVETIRACETAM
     Indication: PRODUCT USED FOR UNKNOWN INDICATION
     Dosage: 2000 MG, 2X/DAY (BID)

REACTIONS (7)
  - Seizure [Recovered/Resolved]
  - Unevaluable event [Recovering/Resolving]
  - Arthralgia [Recovered/Resolved]
  - Anxiety [Unknown]
  - Pain in extremity [Recovered/Resolved]
  - Off label use [Unknown]
  - Overdose [Unknown]

NARRATIVE: CASE EVENT DATE: 201409
